FAERS Safety Report 9397528 (Version 1)
Quarter: 2013Q3

REPORT INFORMATION
  Report Type: Report from Study
  Country: CA (occurrence: CA)
  Receive Date: 20130712
  Receipt Date: 20130712
  Transmission Date: 20140515
  Serious: Yes (Other)
  Sender: FDA-Public Use
  Company Number: CA-JNJFOC-20130705358

PATIENT
  Age: 21 Year
  Sex: Female
  Weight: 75 kg

DRUGS (3)
  1. REMICADE [Suspect]
     Indication: UVEITIS
     Route: 042
     Dates: start: 20080923
  2. METHOTREXATE [Concomitant]
     Route: 048
  3. FOLIC ACID [Concomitant]
     Route: 048

REACTIONS (2)
  - Eye disorder [Unknown]
  - Off label use [Unknown]
